FAERS Safety Report 15659115 (Version 1)
Quarter: 2018Q4

REPORT INFORMATION
  Report Type: Spontaneous
  Country: IT (occurrence: IT)
  Receive Date: 20181127
  Receipt Date: 20181127
  Transmission Date: 20190205
  Serious: Yes (Hospitalization)
  Sender: FDA-Public Use
  Company Number: IT-SA-2018SA320873

PATIENT
  Age: 60 Year
  Sex: Female
  Weight: 84 kg

DRUGS (3)
  1. CAPECITABINE. [Concomitant]
     Active Substance: CAPECITABINE
     Indication: COLON CANCER
     Route: 048
     Dates: start: 20180706, end: 20180727
  2. OXALIPLATIN. [Suspect]
     Active Substance: OXALIPLATIN
     Indication: COLON CANCER
     Dosage: 252.2 MG, QCY
     Route: 042
     Dates: start: 20180706, end: 20180706
  3. OXALIPLATIN. [Suspect]
     Active Substance: OXALIPLATIN
     Dosage: 252.2 UNK
     Route: 042
     Dates: start: 20180727, end: 20180727

REACTIONS (2)
  - Dyspnoea [Recovered/Resolved]
  - Throat tightness [Recovered/Resolved]

NARRATIVE: CASE EVENT DATE: 20180727
